FAERS Safety Report 4348696-7 (Version None)
Quarter: 2004Q2

REPORT INFORMATION
  Report Type: 
  Country: None (occurrence: None)
  Receive Date: 20040423
  Receipt Date: 20040407
  Transmission Date: 20050107
  Serious: Yes (Hospitalization)
  Sender: FDA-Public Use
  Company Number: K200400328

PATIENT
  Age: 81 Year
  Sex: Male

DRUGS (3)
  1. FLORINEF [Suspect]
     Indication: HYPOTENSION
     Dosage: SEE IMAGE
     Dates: end: 20040101
  2. FLORINEF [Suspect]
     Indication: HYPOTENSION
     Dosage: SEE IMAGE
     Dates: start: 20040101
  3. TESTOSTERONE [Concomitant]

REACTIONS (8)
  - AMNESIA [None]
  - CEREBRAL ISCHAEMIA [None]
  - DIZZINESS [None]
  - HYPERHIDROSIS [None]
  - LOSS OF CONSCIOUSNESS [None]
  - PALLOR [None]
  - SUBDURAL HAEMATOMA [None]
  - SYNCOPE [None]
